FAERS Safety Report 10729404 (Version 7)
Quarter: 2015Q3

REPORT INFORMATION
  Report Type: Report from Study
  Country: US (occurrence: US)
  Receive Date: 20150122
  Receipt Date: 20150922
  Transmission Date: 20151125
  Serious: Yes (Hospitalization, Other)
  Sender: FDA-Public Use
  Company Number: US-ABBVIE-15K-163-1334013-00

PATIENT
  Age: 51 Year
  Sex: Female

DRUGS (6)
  1. HUMIRA [Suspect]
     Active Substance: ADALIMUMAB
     Indication: CROHN^S DISEASE
     Route: 065
     Dates: start: 20110814
  2. NEXIUM [Concomitant]
     Active Substance: ESOMEPRAZOLE MAGNESIUM
     Indication: PRODUCT USED FOR UNKNOWN INDICATION
  3. ATIVAN [Concomitant]
     Active Substance: LORAZEPAM
     Indication: INSOMNIA
  4. HUMIRA [Suspect]
     Active Substance: ADALIMUMAB
     Indication: COLITIS ULCERATIVE
     Route: 065
  5. HUMIRA [Suspect]
     Active Substance: ADALIMUMAB
     Indication: RHEUMATOID ARTHRITIS
     Route: 065
     Dates: end: 20150412
  6. XANAX [Concomitant]
     Active Substance: ALPRAZOLAM
     Indication: PRODUCT USED FOR UNKNOWN INDICATION

REACTIONS (30)
  - Pneumonia [Recovered/Resolved]
  - Arthritis [Recovered/Resolved]
  - Arthritis [Not Recovered/Not Resolved]
  - Pain [Unknown]
  - Anuria [Unknown]
  - Laboratory test abnormal [Unknown]
  - Wound [Recovered/Resolved]
  - Influenza [Recovered/Resolved]
  - Arthralgia [Recovered/Resolved]
  - Red blood cell sedimentation rate increased [Unknown]
  - White blood cell count increased [Unknown]
  - Vaginal discharge [Unknown]
  - Weight decreased [Unknown]
  - Joint swelling [Not Recovered/Not Resolved]
  - Liver function test abnormal [Unknown]
  - Glomerular filtration rate abnormal [Unknown]
  - Joint swelling [Recovered/Resolved]
  - Arthralgia [Not Recovered/Not Resolved]
  - Blood phosphorus abnormal [Unknown]
  - Rheumatoid arthritis [Unknown]
  - Protein total abnormal [Unknown]
  - Bladder sphincter atony [Unknown]
  - Drug ineffective [Not Recovered/Not Resolved]
  - Gastrointestinal stoma complication [Unknown]
  - Bladder spasm [Unknown]
  - Paraesthesia [Unknown]
  - Decubitus ulcer [Unknown]
  - Osteoarthritis [Unknown]
  - Malabsorption [Unknown]
  - Catheter site pruritus [Unknown]

NARRATIVE: CASE EVENT DATE: 20140101
